FAERS Safety Report 21493943 (Version 1)
Quarter: 2022Q4

REPORT INFORMATION
  Report Type: Spontaneous
  Country: US (occurrence: US)
  Receive Date: 20221021
  Receipt Date: 20221021
  Transmission Date: 20230112
  Serious: No
  Sender: FDA-Public Use
  Company Number: US-009507513-2210USA005669

PATIENT
  Age: 66 Year
  Sex: Female

DRUGS (4)
  1. TEMODAR [Suspect]
     Active Substance: TEMOZOLOMIDE
     Indication: Pituitary tumour recurrent
     Dosage: FIRST CYCLE
     Route: 048
  2. TEMODAR [Suspect]
     Active Substance: TEMOZOLOMIDE
     Indication: Disease progression
     Dosage: SECOND CYCLE
     Route: 048
  3. SARS-COV-2 VACCINE [Concomitant]
     Dosage: FIRST DOSE
  4. SARS-COV-2 VACCINE [Concomitant]
     Dosage: SECOND DOSE

REACTIONS (1)
  - Product use in unapproved indication [Unknown]
